FAERS Safety Report 8725601 (Version 2)
Quarter: 2012Q4

REPORT INFORMATION
  Report Type: Spontaneous
  Country: US (occurrence: None)
  Receive Date: 20120730
  Receipt Date: 20120911
  Transmission Date: 20130627
  Serious: Yes (Other)
  Sender: FDA-Public Use
  Company Number: 2012SA050802

PATIENT
  Age: 66 Year
  Sex: Female

DRUGS (1)
  1. CAPSAICIN [Suspect]
     Dosage: ; ONCE; UNK

REACTIONS (3)
  - Blister [None]
  - Burns second degree [None]
  - Accidental exposure to product [None]
